FAERS Safety Report 24020782 (Version 1)
Quarter: 2024Q2

REPORT INFORMATION
  Report Type: Spontaneous
  Country: US (occurrence: US)
  Receive Date: 20240627
  Receipt Date: 20240627
  Transmission Date: 20240716
  Serious: Yes (Hospitalization)
  Sender: FDA-Public Use
  Company Number: US-RIGEL Pharmaceuticals, INC-2024FOS000608

PATIENT

DRUGS (2)
  1. TAVALISSE [Suspect]
     Active Substance: FOSTAMATINIB
     Dosage: 100 MG, QD
     Route: 048
     Dates: start: 20231004
  2. TAVALISSE [Suspect]
     Active Substance: FOSTAMATINIB
     Indication: Immune thrombocytopenia

REACTIONS (3)
  - Hospitalisation [Unknown]
  - Cellulitis [Unknown]
  - Product use issue [Unknown]
